FAERS Safety Report 16364241 (Version 2)
Quarter: 2019Q2

REPORT INFORMATION
  Report Type: Report from Study
  Country: US (occurrence: US)
  Receive Date: 20190528
  Receipt Date: 20190624
  Transmission Date: 20190711
  Serious: Yes (Other)
  Sender: FDA-Public Use
  Company Number: PHHY2019US121339

PATIENT
  Age: 67 Year
  Sex: Female

DRUGS (1)
  1. GILENYA [Suspect]
     Active Substance: FINGOLIMOD HYDROCHLORIDE
     Indication: MULTIPLE SCLEROSIS
     Dosage: UNK, QD
     Route: 048

REACTIONS (16)
  - Alanine aminotransferase increased [Unknown]
  - Seborrhoeic keratosis [Unknown]
  - Neoplasm skin [Unknown]
  - Anisomastia [Unknown]
  - Astigmatism [Unknown]
  - Hypermetropia [Unknown]
  - Aspartate aminotransferase increased [Unknown]
  - Cataract nuclear [Unknown]
  - Lymphocyte count decreased [Unknown]
  - Actinic keratosis [Unknown]
  - Haemangioma of skin [Unknown]
  - Melanocytic naevus [Unknown]
  - Myopia [Unknown]
  - Supraventricular extrasystoles [Unknown]
  - Osteopenia [Unknown]
  - Refraction disorder [Unknown]

NARRATIVE: CASE EVENT DATE: 20190115
